FAERS Safety Report 19578347 (Version 2)
Quarter: 2021Q4

REPORT INFORMATION
  Report Type: Report from Study
  Country: CO (occurrence: CO)
  Receive Date: 20210719
  Receipt Date: 20211227
  Transmission Date: 20220303
  Serious: Yes (Other)
  Sender: FDA-Public Use
  Company Number: CO-NOVARTISPH-NVSC2021CO063780

PATIENT
  Age: 49 Year
  Sex: Female
  Weight: 72 kg

DRUGS (2)
  1. COSENTYX [Suspect]
     Active Substance: SECUKINUMAB
     Indication: Ankylosing spondylitis
     Dosage: 150 MG, QMO
     Route: 058
     Dates: start: 20191127, end: 202101
  2. COSENTYX [Suspect]
     Active Substance: SECUKINUMAB
     Dosage: 150 MG, QMO
     Route: 058

REACTIONS (11)
  - Choking [Unknown]
  - Gait disturbance [Unknown]
  - Feeling abnormal [Unknown]
  - Chest discomfort [Unknown]
  - Coagulopathy [Unknown]
  - Menstrual disorder [Recovered/Resolved]
  - Epistaxis [Recovered/Resolved]
  - Heavy menstrual bleeding [Recovered/Resolved]
  - Fatigue [Unknown]
  - Chest pain [Unknown]
  - Thyroid disorder [Unknown]

NARRATIVE: CASE EVENT DATE: 20210216
